FAERS Safety Report 4562364-8 (Version None)
Quarter: 2005Q1

REPORT INFORMATION
  Report Type: 
  Country: None (occurrence: None)
  Receive Date: 20050127
  Receipt Date: 20050118
  Transmission Date: 20050727
  Serious: Yes (Hospitalization)
  Sender: FDA-Public Use
  Company Number: 200510203JP

PATIENT
  Age: 72 Year
  Sex: Male

DRUGS (7)
  1. KETEK [Suspect]
     Indication: BRONCHITIS
     Route: 048
     Dates: start: 20041030, end: 20041031
  2. BRUFEN [Concomitant]
     Dates: start: 20041030, end: 20041031
  3. MUCODYNE [Concomitant]
     Dates: start: 20041030, end: 20041031
  4. THEO-DUR [Concomitant]
     Dates: end: 20041031
  5. IPD [Concomitant]
     Dosage: DOSE: 3CAPSULES
     Dates: end: 20041031
  6. LANDEL [Concomitant]
     Dates: end: 20041031
  7. LOCHOL [Concomitant]
     Dates: end: 20041031

REACTIONS (2)
  - DEPRESSED LEVEL OF CONSCIOUSNESS [None]
  - HYPOGLYCAEMIA [None]
